FAERS Safety Report 9511140 (Version 1)
Quarter: 2013Q3

REPORT INFORMATION
  Report Type: Spontaneous
  Country: US (occurrence: None)
  Receive Date: 20130905
  Receipt Date: 20130905
  Transmission Date: 20140515
  Serious: Yes (Other)
  Sender: FDA-Public Use
  Company Number: AUR-APL-2013-06976

PATIENT
  Sex: Female
  Weight: 109 kg

DRUGS (3)
  1. MELOXICAM (MELOXICAM) [Suspect]
     Indication: ARTHRITIS
  2. CELEBREX (CELECOXIB) [Suspect]
     Indication: ARTHRITIS
  3. CALAN SR [Suspect]
     Indication: HYPERTENSION

REACTIONS (4)
  - Foot operation [None]
  - Drug ineffective [None]
  - Arthropathy [None]
  - Abasia [None]
